FAERS Safety Report 8767841 (Version 2)
Quarter: 2012Q4

REPORT INFORMATION
  Report Type: 
  Country: PT (occurrence: PT)
  Receive Date: 20120904
  Receipt Date: 20121012
  Transmission Date: 20130627
  Serious: Yes (Other)
  Sender: FDA-Public Use
  Company Number: PHHY2012PT075242

PATIENT
  Sex: Male

DRUGS (1)
  1. LISINOPRIL SANDOZ [Suspect]
     Dosage: 5 mg, UNK

REACTIONS (3)
  - Blood pressure increased [Unknown]
  - Dizziness [Unknown]
  - Headache [Unknown]
